FAERS Safety Report 21856551 (Version 3)
Quarter: 2023Q2

REPORT INFORMATION
  Report Type: Report from Study
  Country: DE (occurrence: DE)
  Receive Date: 20230112
  Receipt Date: 20230413
  Transmission Date: 20230721
  Serious: Yes (Hospitalization)
  Sender: FDA-Public Use
  Company Number: DE-JNJFOC-20230109755

PATIENT
  Age: 8 Decade
  Sex: Male
  Weight: 90 kg

DRUGS (5)
  1. DARZALEX [Suspect]
     Active Substance: DARATUMUMAB
     Indication: Plasma cell myeloma
     Dosage: LAST APPLICATION BEFORE SAE 22-DEC-2022?30 DAYS AFTER THERAPY 21-JAN-2023
     Route: 041
     Dates: start: 20221221
  2. DARZALEX [Suspect]
     Active Substance: DARATUMUMAB
     Dosage: LAST APPLICATION BEFORE SAE 28-DEC-2022?30 DAYS AFTER THERAPY 27-JAN-2023
     Route: 041
     Dates: start: 20221228
  3. LENALIDOMIDE [Suspect]
     Active Substance: LENALIDOMIDE
     Indication: Plasma cell myeloma
     Dosage: LAST APPLICATION BEFORE SAE 02-JAN-2023?30 DAYS AFTER THERAPY 1-FEB-2023
     Route: 048
     Dates: start: 20221221
  4. DEXAMETHASONE [Suspect]
     Active Substance: DEXAMETHASONE
     Indication: Plasma cell myeloma
     Dosage: LAST APPLICATION BEFORE SAE 23-DEC-2022
     Route: 048
     Dates: start: 20221221
  5. DEXAMETHASONE [Suspect]
     Active Substance: DEXAMETHASONE
     Dosage: LAST APPLICATION BEFORE SAE 29-DEC-2022
     Route: 048
     Dates: start: 20221224

REACTIONS (2)
  - Febrile neutropenia [Recovered/Resolved]
  - Chest pain [Unknown]

NARRATIVE: CASE EVENT DATE: 20230103
